FAERS Safety Report 15448780 (Version 1)
Quarter: 2018Q3

REPORT INFORMATION
  Report Type: Spontaneous
  Country: None (occurrence: GB)
  Receive Date: 20180929
  Receipt Date: 20180929
  Transmission Date: 20181010
  Serious: Yes (Life-Threatening, Hospitalization, Other)
  Sender: FDA-Public Use
  Company Number: GB-LABORATOIRE HRA PHARMA-2055501

PATIENT
  Age: 30 Year
  Sex: Male

DRUGS (1)
  1. METOPIRONE [Suspect]
     Active Substance: METYRAPONE
     Indication: PITUITARY-DEPENDENT CUSHING^S SYNDROME

REACTIONS (6)
  - Pulmonary tuberculosis [Recovered/Resolved]
  - Respiratory failure [Recovered/Resolved]
  - Pneumonia influenzal [Recovered/Resolved]
  - Pneumocystis jirovecii pneumonia [Recovered/Resolved]
  - Pneumonia streptococcal [Recovered/Resolved]
  - Pneumonia cytomegaloviral [Recovered/Resolved]
